FAERS Safety Report 6196358-6 (Version None)
Quarter: 2009Q2

REPORT INFORMATION
  Report Type: 
  Country: None (occurrence: None)
  Receive Date: 20090520
  Receipt Date: 20090511
  Transmission Date: 20091009
  Serious: Yes (Other)
  Sender: FDA-Public Use
  Company Number: FR-ASTRAZENECA-2009CG00925

PATIENT
  Age: 45 Year
  Sex: Male

DRUGS (3)
  1. NAROPIN [Suspect]
     Indication: NERVE BLOCK
     Route: 053
     Dates: start: 20060828, end: 20060828
  2. NAROPIN [Suspect]
     Route: 053
     Dates: start: 20060911, end: 20060911
  3. NAROPIN [Suspect]
     Route: 053
     Dates: start: 20060917, end: 20060917

REACTIONS (1)
  - AXONAL NEUROPATHY [None]
